FAERS Safety Report 23630852 (Version 1)
Quarter: 2024Q1

REPORT INFORMATION
  Report Type: Report from Study
  Country: EG (occurrence: EG)
  Receive Date: 20240314
  Receipt Date: 20240314
  Transmission Date: 20240409
  Serious: No
  Sender: FDA-Public Use
  Company Number: EG-SANDOZ-SDZ2024EG027491

PATIENT
  Age: 9 Year
  Sex: Female
  Weight: 30 kg

DRUGS (4)
  1. NORDITROPIN [Suspect]
     Active Substance: SOMATROPIN
     Indication: Growth hormone deficiency
     Dosage: 1 MG/DAY / START DATE: 6 MONTHS BEFOR START OMNITROPE / STOP DATE: AFTER 2MONTHS
     Route: 058
  2. OMNITROPE [Suspect]
     Active Substance: SOMATROPIN
     Indication: Growth hormone deficiency
     Dosage: 1 MG/DAY TO 1.2 MG/DAY FOR NORMAL GROWTH
     Route: 058
     Dates: start: 20220605
  3. DEVAROL [Concomitant]
     Indication: Supplementation therapy
     Dosage: 1 AMPOULE/3 MONTHS /IM/ORAL
     Route: 065
     Dates: start: 20220605
  4. ELBAVIT [Concomitant]
     Indication: Supplementation therapy
     Dosage: 5 CM
     Route: 048
     Dates: start: 20220605

REACTIONS (5)
  - Nasopharyngitis [Recovered/Resolved]
  - Wrong technique in product usage process [Unknown]
  - Wrong technique in product usage process [Unknown]
  - Multiple use of single-use product [Unknown]
  - Device breakage [Unknown]

NARRATIVE: CASE EVENT DATE: 20220605
